FAERS Safety Report 8528914 (Version 2)
Quarter: 2012Q4

REPORT INFORMATION
  Report Type: 
  Country: US (occurrence: US)
  Receive Date: 20120425
  Receipt Date: 20121101
  Transmission Date: 20130627
  Serious: No
  Sender: FDA-Public Use
  Company Number: US-US-EMD SERONO, INC.-7126983

PATIENT
  Age: 51 None
  Sex: Female

DRUGS (6)
  1. REBIF [Suspect]
     Indication: MULTIPLE SCLEROSIS
     Route: 058
     Dates: start: 20020927
  2. NORTRIPTYLINE [Concomitant]
     Indication: FIBROMYALGIA
  3. CLONAZEPAM [Concomitant]
     Indication: FIBROMYALGIA
  4. OMEPRAZOLE [Concomitant]
     Indication: GASTROOESOPHAGEAL REFLUX DISEASE
  5. PREMARIN [Concomitant]
     Indication: HOT FLUSH
  6. SERTRALINE [Concomitant]
     Indication: FATIGUE

REACTIONS (5)
  - Skin induration [Unknown]
  - Abdominal pain [Recovered/Resolved]
  - Back pain [Not Recovered/Not Resolved]
  - Multiple sclerosis relapse [Unknown]
  - Injection site bruising [Not Recovered/Not Resolved]
